FAERS Safety Report 10049444 (Version 1)
Quarter: 2014Q2

REPORT INFORMATION
  Report Type: Spontaneous
  Country: IN (occurrence: IN)
  Receive Date: 20140401
  Receipt Date: 20140401
  Transmission Date: 20141212
  Serious: Yes (Other)
  Sender: FDA-Public Use
  Company Number: IN-ROCHE-1374253

PATIENT
  Age: 57 Year
  Sex: Male

DRUGS (1)
  1. AVASTIN [Suspect]
     Indication: RETINAL VEIN OCCLUSION
     Dosage: 100 MG/4 ML
     Route: 031

REACTIONS (3)
  - Endophthalmitis [Recovered/Resolved]
  - Suspected transmission of an infectious agent via product [Unknown]
  - Product quality issue [Unknown]
